FAERS Safety Report 18168153 (Version 1)
Quarter: 2020Q3

REPORT INFORMATION
  Report Type: Spontaneous
  Country: US (occurrence: US)
  Receive Date: 20200818
  Receipt Date: 20200818
  Transmission Date: 20201103
  Serious: Yes (Other)
  Sender: FDA-Public Use
  Company Number: None

PATIENT
  Age: 64 Year
  Sex: Female
  Weight: 90.9 kg

DRUGS (14)
  1. NORCO [Concomitant]
     Active Substance: ACETAMINOPHEN\HYDROCODONE BITARTRATE
  2. PREGABALIN. [Concomitant]
     Active Substance: PREGABALIN
  3. VITAMIN C [Concomitant]
     Active Substance: ASCORBIC ACID
  4. HUMULIN R [Concomitant]
     Active Substance: INSULIN HUMAN
  5. SYMBICORT [Concomitant]
     Active Substance: BUDESONIDE\FORMOTEROL FUMARATE DIHYDRATE
  6. VERZENIO [Suspect]
     Active Substance: ABEMACICLIB
     Indication: BREAST CANCER FEMALE
     Route: 048
     Dates: start: 20200604
  7. FASLODEX [Concomitant]
     Active Substance: FULVESTRANT
  8. ATORVASTATIN [Concomitant]
     Active Substance: ATORVASTATIN
  9. SOTALOL. [Concomitant]
     Active Substance: SOTALOL
  10. METOPROLOL. [Concomitant]
     Active Substance: METOPROLOL
  11. XARELTO [Concomitant]
     Active Substance: RIVAROXABAN
  12. LETROZOLE. [Concomitant]
     Active Substance: LETROZOLE
  13. HUMULIN 70/30 [Concomitant]
     Active Substance: INSULIN HUMAN
  14. AMLODIPINE [Concomitant]
     Active Substance: AMLODIPINE BESYLATE

REACTIONS (1)
  - Dysphonia [None]

NARRATIVE: CASE EVENT DATE: 20200818
